FAERS Safety Report 7442446-3 (Version None)
Quarter: 2011Q2

REPORT INFORMATION
  Report Type: 
  Country: None (occurrence: None)
  Receive Date: 20110426
  Receipt Date: 20110426
  Transmission Date: 20111010
  Serious: Yes (Death)
  Sender: FDA-Public Use
  Company Number: None

PATIENT
  Age: 34 Year
  Sex: Female
  Weight: 52 kg

DRUGS (1)
  1. ARIXTRA [Suspect]
     Indication: CEREBROVASCULAR ACCIDENT PROPHYLAXIS
     Dosage: 5MG DAILY SQ
     Route: 058

REACTIONS (8)
  - CEREBRAL HAEMORRHAGE [None]
  - BRAIN DEATH [None]
  - ABNORMAL BEHAVIOUR [None]
  - BRAIN MIDLINE SHIFT [None]
  - INAPPROPRIATE AFFECT [None]
  - UNRESPONSIVE TO STIMULI [None]
  - SOMNOLENCE [None]
  - CRYING [None]
